FAERS Safety Report 15043762 (Version 2)
Quarter: 2018Q2

REPORT INFORMATION
  Report Type: Report from Study
  Country: US (occurrence: US)
  Receive Date: 20180621
  Receipt Date: 20180625
  Transmission Date: 20180711
  Serious: Yes (Other)
  Sender: FDA-Public Use
  Company Number: US-JNJFOC-20171113240

PATIENT
  Sex: Female

DRUGS (1)
  1. STELARA [Suspect]
     Active Substance: USTEKINUMAB
     Indication: CROHN^S DISEASE
     Route: 058
     Dates: start: 20171025

REACTIONS (8)
  - Crohn^s disease [Unknown]
  - Sinusitis [Not Recovered/Not Resolved]
  - Migraine [Unknown]
  - Rash [Unknown]
  - Pruritus generalised [Unknown]
  - Sinus disorder [Unknown]
  - Drug ineffective [Unknown]
  - Influenza like illness [Unknown]

NARRATIVE: CASE EVENT DATE: 2017
